FAERS Safety Report 8619101-7 (Version None)
Quarter: 2012Q3

REPORT INFORMATION
  Report Type: 
  Country: None (occurrence: None)
  Receive Date: 20120824
  Receipt Date: 20120822
  Transmission Date: 20120928
  Serious: Yes (Hospitalization)
  Sender: FDA-Public Use
  Company Number: PHFR2012GB004548

PATIENT
  Sex: Female

DRUGS (1)
  1. ESTRADIOL VALERATE [Suspect]
     Dosage: 1 MG
     Route: 048

REACTIONS (1)
  - DYSPHAGIA [None]
